FAERS Safety Report 23672694 (Version 2)
Quarter: 2024Q2

REPORT INFORMATION
  Report Type: Report from Study
  Country: US (occurrence: US)
  Receive Date: 20240326
  Receipt Date: 20240406
  Transmission Date: 20240715
  Serious: Yes (Other)
  Sender: FDA-Public Use
  Company Number: US-UCBSA-2024013765

PATIENT
  Sex: Female
  Weight: 58.5 kg

DRUGS (20)
  1. ROTIGOTINE [Suspect]
     Active Substance: ROTIGOTINE
     Indication: Parkinson^s disease
     Dosage: 8 MILLIGRAM, ONCE DAILY (QD)
     Route: 062
     Dates: start: 2011
  2. ROTIGOTINE [Suspect]
     Active Substance: ROTIGOTINE
     Dosage: 4 MILLIGRAM, ONCE DAILY (QD)
     Route: 062
  3. AZILECT [Suspect]
     Active Substance: RASAGILINE MESYLATE
     Indication: Parkinson^s disease
     Dosage: TAKE 1 TABLET BY MOUTH ONCE DAILY
     Route: 048
     Dates: start: 20240129
  4. SINEMET [Concomitant]
     Active Substance: CARBIDOPA\LEVODOPA
     Indication: Parkinson^s disease
     Dosage: 25-100MG 4 TIMES PER DAY
     Route: 048
     Dates: start: 20240129
  5. SINEMET CR [Concomitant]
     Active Substance: CARBIDOPA\LEVODOPA
     Indication: Parkinson^s disease
     Dosage: 50-200MG AT BEDTIME
     Route: 048
     Dates: start: 20230922
  6. RITALIN [Concomitant]
     Active Substance: METHYLPHENIDATE HYDROCHLORIDE
     Indication: Parkinson^s disease
     Dosage: 1/2 TAB PO BID X 1 WEEK THEN SIG 1 TAB PO BID
     Route: 048
     Dates: start: 20240318
  7. TYLENOL [Concomitant]
     Active Substance: ACETAMINOPHEN
     Indication: Product used for unknown indication
     Dosage: 1000 MG BY MOUTH. 2 TBS QD AS NEEDED,
     Route: 048
  8. ELIQUIS [Concomitant]
     Active Substance: APIXABAN
     Indication: Product used for unknown indication
     Dosage: TAKE 1 TABLET BY MOUTH TWICE DAILY. BEGIN AFTER COMPLETING STARTER PACK
     Route: 048
     Dates: start: 20231008
  9. ASPIRIN [Concomitant]
     Active Substance: ASPIRIN
     Indication: Product used for unknown indication
     Dosage: 81 MILLIGRAM, ONCE DAILY (QD), ENTERIC COATED TABLET
     Route: 048
  10. OPTIVAR [Concomitant]
     Active Substance: AZELASTINE HYDROCHLORIDE
     Indication: Product used for unknown indication
     Dosage: INSTILL 1 DROP TO BOTH EYES DAILY - BOTH EYES
     Dates: start: 20230403
  11. OSCAL [CALCIUM CARBONATE] [Concomitant]
     Indication: Product used for unknown indication
     Dosage: 500 MILLIGRAM, 2X/DAY (BID)
     Route: 048
  12. VITAMIN B12 [Concomitant]
     Active Substance: CYANOCOBALAMIN
     Indication: Product used for unknown indication
     Dosage: 1000 MICROGRAM
     Route: 048
     Dates: start: 20230616
  13. VOLTAREN [Concomitant]
     Active Substance: DICLOFENAC SODIUM
     Indication: Product used for unknown indication
     Dosage: 1% TOPICAL GEL (APPLY 2 GRAMS 4 TIMES A DAY)
     Dates: start: 20240105
  14. FLONASE [Concomitant]
     Active Substance: FLUTICASONE PROPIONATE
     Indication: Product used for unknown indication
     Dosage: INSTILL 2 SPRAYS INTO EACH NOSTRIL DAILY
     Dates: start: 20240120
  15. MOTRIN [Concomitant]
     Active Substance: IBUPROFEN
     Indication: Pain
     Dosage: TAKE  10 ML (200 MG TOTAL) BY MOUTH EVENJ4 (FOUR) HOURS AS NEEDED FOR MILD PAIN (PAIN SCALE 1-3)
     Route: 048
  16. MELATONIN [Concomitant]
     Active Substance: MELATONIN
     Indication: Product used for unknown indication
     Dosage: TAKE 1 CAPSULE BY MOUTH DAILY. CHEWABLE GUMMIES
     Route: 048
  17. PRILOSEC [Concomitant]
     Active Substance: OMEPRAZOLE MAGNESIUM
     Indication: Product used for unknown indication
     Dosage: TAKE CAPSULE (20 MG TOTAL) BY MOUTH DAILY
     Route: 048
     Dates: start: 20231213
  18. OPICAPONE [Concomitant]
     Active Substance: OPICAPONE
     Indication: Product used for unknown indication
     Dosage: TAKE CAPSULE BY MOUTH EVERY EVENING.
     Route: 048
     Dates: start: 20230922
  19. ARTIFICIAL TEARS (GLYCERIN\HYPROMELLOSES\POLYETHYLENE GLYCOL 400) [Concomitant]
     Active Substance: GLYCERIN\HYPROMELLOSES\POLYETHYLENE GLYCOL 400
     Indication: Product used for unknown indication
     Dosage: 1-0.2-0.2%OPHTHALMIC SOLUTION INSTI11 TO 2 DROPS INTO AFFECTED EYE(S) 4 TIMES DAILY AS DIRECTED
     Dates: start: 20230404
  20. VALTREX [Concomitant]
     Active Substance: VALACYCLOVIR HYDROCHLORIDE
     Indication: Product used for unknown indication
     Dosage: TAKE 1 TABLET BY MOUTH TWICE DAILY AS NEEDED FOR 5 DAYS
     Route: 048
     Dates: start: 20191203

REACTIONS (15)
  - Hallucination [Unknown]
  - Parkinson^s disease [Unknown]
  - Dystonia [Unknown]
  - Deep brain stimulation [Not Recovered/Not Resolved]
  - Dyskinesia [Unknown]
  - Gambling disorder [Unknown]
  - Exercise tolerance decreased [Unknown]
  - Fatigue [Unknown]
  - Gait disturbance [Unknown]
  - Balance disorder [Unknown]
  - Speech disorder [Unknown]
  - Nervous system disorder [Unknown]
  - Pulse abnormal [Unknown]
  - Rapid alternating movement test abnormal [Unknown]
  - Dysarthria [Unknown]

NARRATIVE: CASE EVENT DATE: 20220101
